FAERS Safety Report 16708971 (Version 1)
Quarter: 2019Q3

REPORT INFORMATION
  Report Type: Spontaneous
  Country: US (occurrence: US)
  Receive Date: 20190629
  Receipt Date: 20190629
  Transmission Date: 20191004
  Serious: Yes (Hospitalization)
  Sender: FDA-Public Use
  Company Number: None

PATIENT
  Age: 55 Year
  Sex: Female
  Weight: 69.5 kg

DRUGS (5)
  1. METHOTREXATE. [Suspect]
     Active Substance: METHOTREXATE
     Dates: end: 20180319
  2. ONCASPAR [Suspect]
     Active Substance: PEGASPARGASE
     Dates: end: 20180312
  3. CYTARABINE. [Suspect]
     Active Substance: CYTARABINE
     Dates: end: 20180412
  4. CYCLOPHOSPHAMIDE. [Suspect]
     Active Substance: CYCLOPHOSPHAMIDE
     Dates: end: 20180402
  5. MERCAPTOPURINE. [Suspect]
     Active Substance: MERCAPTOPURINE
     Dates: end: 20180417

REACTIONS (7)
  - Diarrhoea haemorrhagic [None]
  - Dizziness [None]
  - Nausea [None]
  - Pancytopenia [None]
  - Diarrhoea [None]
  - Dyspnoea [None]
  - Clostridium test positive [None]

NARRATIVE: CASE EVENT DATE: 20180423
